FAERS Safety Report 15549857 (Version 1)
Quarter: 2018Q4

REPORT INFORMATION
  Report Type: Spontaneous
  Country: PT (occurrence: PT)
  Receive Date: 20181025
  Receipt Date: 20181025
  Transmission Date: 20190205
  Serious: Yes (Other)
  Sender: FDA-Public Use
  Company Number: PHHY2018PT134744

PATIENT
  Age: 40 Year
  Sex: Female

DRUGS (4)
  1. ALPHA-METHYLDOPA [Suspect]
     Active Substance: METHYLDOPA
     Indication: HYPERTENSION
     Route: 065
  2. FENOBARBITAL [Suspect]
     Active Substance: PHENOBARBITAL
     Indication: PRODUCT USED FOR UNKNOWN INDICATION
     Dosage: UNK
     Route: 065
  3. FANSIDAR [Suspect]
     Active Substance: PYRIMETHAMINE\SULFADOXINE
     Indication: MALARIA
     Route: 065
  4. FOLIC ACID. [Suspect]
     Active Substance: FOLIC ACID
     Indication: PRODUCT USED FOR UNKNOWN INDICATION
     Dosage: UNK
     Route: 065

REACTIONS (2)
  - Premature delivery [Unknown]
  - Maternal exposure during pregnancy [Unknown]
